FAERS Safety Report 8196213-6 (Version None)
Quarter: 2012Q1

REPORT INFORMATION
  Report Type: 
  Country: None (occurrence: None)
  Receive Date: 20120306
  Receipt Date: 20120224
  Transmission Date: 20120608
  Serious: Yes (Hospitalization)
  Sender: FDA-Public Use
  Company Number: 2012AP000531

PATIENT
  Age: 58 Year
  Sex: Female

DRUGS (13)
  1. VALPROIC ACID [Suspect]
     Indication: CONVULSION
     Dosage: 250 MG;TID 500 MG;TID 250 MG;TID 500 MG;TID
  2. POTASSIUM CHLORIDE [Concomitant]
  3. FUROSEMIDE (FUROSEMIDE) [Concomitant]
  4. LANSOPRAZOLE [Concomitant]
  5. ERTAPENEM (ERTAPENEM) [Suspect]
     Indication: PYELONEPHRITIS ACUTE
     Dosage: 1 G;QD
     Route: 042
  6. ERGOCALCIFEROL [Concomitant]
  7. AMITRIPTYLINE HCL [Concomitant]
  8. LATANOPROST [Concomitant]
  9. BACLOFEN [Concomitant]
  10. BRIMONIDINE TARTRATE [Concomitant]
  11. ALENDRONATE SODIUM [Concomitant]
  12. TIMOLOL MALEATE [Concomitant]
  13. CALCIUM CARBONATE [Concomitant]

REACTIONS (7)
  - PYELONEPHRITIS ACUTE [None]
  - DRUG INTERACTION [None]
  - CANDIDIASIS [None]
  - ANTICONVULSANT DRUG LEVEL DECREASED [None]
  - ESCHERICHIA TEST POSITIVE [None]
  - CONFUSIONAL STATE [None]
  - CULTURE URINE POSITIVE [None]
